FAERS Safety Report 13831352 (Version 1)
Quarter: 2017Q3

REPORT INFORMATION
  Report Type: Spontaneous
  Country: BR (occurrence: BR)
  Receive Date: 20170803
  Receipt Date: 20170803
  Transmission Date: 20171127
  Serious: Yes (Other)
  Sender: FDA-Public Use
  Company Number: PHHY2017BR113747

PATIENT
  Age: 77 Year
  Sex: Female

DRUGS (1)
  1. AMOXICILLIN AND CLAVULANATE POTASSIUM [Suspect]
     Active Substance: AMOXICILLIN\CLAVULANATE POTASSIUM
     Indication: VIRAL UPPER RESPIRATORY TRACT INFECTION
     Dosage: 1 DF, Q8H
     Route: 048

REACTIONS (8)
  - Productive cough [Unknown]
  - Crying [Unknown]
  - Pertussis [Unknown]
  - Drug effect incomplete [Unknown]
  - Tinnitus [Unknown]
  - Cough [Unknown]
  - Diarrhoea [Unknown]
  - Prescription drug used without a prescription [Unknown]
